FAERS Safety Report 10340177 (Version 1)
Quarter: 2014Q3

REPORT INFORMATION
  Report Type: Spontaneous
  Country: US (occurrence: US)
  Receive Date: 20140724
  Receipt Date: 20140724
  Transmission Date: 20150326
  Serious: No
  Sender: FDA-Public Use
  Company Number: US-009507513-1407USA009969

PATIENT
  Age: 51 Year
  Sex: Female

DRUGS (2)
  1. DESOGEN [Suspect]
     Active Substance: DESOGESTREL\ETHINYL ESTRADIOL
     Indication: ENDOMETRIOSIS
     Dosage: UNK
     Route: 048
  2. DESOGEN [Suspect]
     Active Substance: DESOGESTREL\ETHINYL ESTRADIOL
     Indication: UTERINE LEIOMYOMA

REACTIONS (2)
  - Abdominal pain upper [Unknown]
  - Off label use [Unknown]
